FAERS Safety Report 25356828 (Version 1)
Quarter: 2025Q2

REPORT INFORMATION
  Report Type: Spontaneous
  Country: SV (occurrence: SV)
  Receive Date: 20250526
  Receipt Date: 20250526
  Transmission Date: 20250716
  Serious: Yes (Death, Other)
  Sender: BRISTOL-MYERS SQUIBB COMPANY
  Company Number: SV-BRISTOL-MYERS SQUIBB COMPANY-2025-071388

PATIENT
  Age: 64 Year
  Sex: Male

DRUGS (1)
  1. SPRYCEL [Suspect]
     Active Substance: DASATINIB
     Indication: Chronic myeloid leukaemia

REACTIONS (1)
  - Death [Fatal]

NARRATIVE: CASE EVENT DATE: 20250510
